FAERS Safety Report 14038175 (Version 1)
Quarter: 2017Q4

REPORT INFORMATION
  Report Type: Report from Study
  Country: LB (occurrence: LB)
  Receive Date: 20171004
  Receipt Date: 20171004
  Transmission Date: 20180321
  Serious: Yes (Other)
  Sender: FDA-Public Use
  Company Number: PHHY2017LB124916

PATIENT
  Age: 33 Year
  Sex: Male

DRUGS (2)
  1. COSENTYX [Suspect]
     Active Substance: SECUKINUMAB
     Indication: ANKYLOSING SPONDYLITIS
     Dosage: 300 MG, UNK
     Route: 058
  2. COSENTYX [Suspect]
     Active Substance: SECUKINUMAB
     Indication: PSORIASIS
     Dosage: 300 MG, QW (5 CONSECUTIVE WEEKS, AND THEN 150MG ONCE A MONTH)
     Route: 058
     Dates: start: 20170731, end: 20170819

REACTIONS (5)
  - Skin exfoliation [Recovering/Resolving]
  - Burning sensation [Recovering/Resolving]
  - Bone pain [Unknown]
  - Lacrimation increased [Recovering/Resolving]
  - Pain in extremity [Unknown]

NARRATIVE: CASE EVENT DATE: 20170818
